FAERS Safety Report 16862613 (Version 3)
Quarter: 2020Q1

REPORT INFORMATION
  Report Type: Spontaneous
  Country: US (occurrence: US)
  Receive Date: 20190927
  Receipt Date: 20200102
  Transmission Date: 20200409
  Serious: Yes (Hospitalization, Other)
  Sender: FDA-Public Use
  Company Number: US-MALLINCKRODT-T201905918

PATIENT
  Sex: Female

DRUGS (1)
  1. H.P. ACTHAR [Suspect]
     Active Substance: CORTICOTROPIN
     Indication: SYSTEMIC LUPUS ERYTHEMATOSUS
     Dosage: 80 UNITS (1ML), THREE TIMES A WEEK AS DIRECTED
     Route: 058
     Dates: start: 201802

REACTIONS (10)
  - Flatulence [Unknown]
  - Hypoaesthesia [Unknown]
  - Nausea [Unknown]
  - Migraine [Unknown]
  - Abdominal distension [Unknown]
  - Clostridium difficile infection [Recovered/Resolved]
  - Bacterial infection [Unknown]
  - Systemic lupus erythematosus [Unknown]
  - Viral infection [Unknown]
  - Ovarian cancer recurrent [Unknown]

NARRATIVE: CASE EVENT DATE: 2019
